FAERS Safety Report 5335911-6 (Version None)
Quarter: 2007Q2

REPORT INFORMATION
  Report Type: 
  Country: None (occurrence: None)
  Receive Date: 20070302
  Receipt Date: 20070119
  Transmission Date: 20071010
  Serious: No
  Sender: FDA-Public Use
  Company Number: PHEH2007US01112

PATIENT
  Age: 84 Year
  Sex: Male

DRUGS (2)
  1. EXJADE [Suspect]
     Indication: MYELODYSPLASTIC SYNDROME
     Dosage: 2000 MG, QD, ORAL
     Route: 048
     Dates: start: 20060401
  2. REVLIMID [Suspect]
     Indication: MYELODYSPLASTIC SYNDROME
     Dates: start: 20070115

REACTIONS (1)
  - PRURITUS [None]
